FAERS Safety Report 18145168 (Version 1)
Quarter: 2020Q3

REPORT INFORMATION
  Report Type: Spontaneous
  Country: US (occurrence: US)
  Receive Date: 20200813
  Receipt Date: 20200813
  Transmission Date: 20201103
  Serious: No
  Sender: FDA-Public Use
  Company Number: US-PFIZER INC-2020309697

PATIENT
  Age: 37 Year
  Sex: Female

DRUGS (2)
  1. ASACOL HD [Concomitant]
     Active Substance: MESALAMINE
     Dosage: 800 MG
  2. XELJANZ [Suspect]
     Active Substance: TOFACITINIB CITRATE
     Indication: COLITIS ULCERATIVE
     Dosage: 5 MG, 2X/DAY
     Route: 048
     Dates: start: 20200310

REACTIONS (1)
  - Diarrhoea [Unknown]
